FAERS Safety Report 23981788 (Version 1)
Quarter: 2024Q2

REPORT INFORMATION
  Report Type: Spontaneous
  Country: US (occurrence: None)
  Receive Date: 20240615
  Receipt Date: 20240615
  Transmission Date: 20240716
  Serious: Yes (Life-Threatening, Disabling, Other)
  Sender: FDA-Public Use
  Company Number: None

PATIENT
  Age: 33 Year
  Sex: Female
  Weight: 89.55 kg

DRUGS (11)
  1. FLUOXETINE [Suspect]
     Active Substance: FLUOXETINE HYDROCHLORIDE
     Dosage: ORAL
     Route: 048
     Dates: start: 20240316, end: 20240520
  2. PHENTERMINE [Suspect]
     Active Substance: PHENTERMINE
  3. CELEBREX [Suspect]
     Active Substance: CELECOXIB
  4. CANNABIDIOL\HERBALS [Suspect]
     Active Substance: CANNABIDIOL\HERBALS
  5. UNSPECIFIED INGREDIENT [Suspect]
     Active Substance: UNSPECIFIED INGREDIENT
  6. VALIUM [Concomitant]
  7. METHOCARBAMOL [Concomitant]
  8. PROZAC [Concomitant]
     Active Substance: FLUOXETINE HYDROCHLORIDE
  9. Prenatal Vitamin [Concomitant]
  10. DIETARY SUPPLEMENT [Concomitant]
     Active Substance: DIETARY SUPPLEMENT
  11. Stook softener [Concomitant]

REACTIONS (2)
  - Serotonin syndrome [None]
  - Mania [None]

NARRATIVE: CASE EVENT DATE: 20240515
